FAERS Safety Report 6307676-2 (Version None)
Quarter: 2009Q3

REPORT INFORMATION
  Report Type: 
  Country: None (occurrence: None)
  Receive Date: 20090813
  Receipt Date: 20090804
  Transmission Date: 20100115
  Serious: Yes (Other)
  Sender: FDA-Public Use
  Company Number: PHEH2009US08127

PATIENT
  Sex: Female
  Weight: 63.039 kg

DRUGS (12)
  1. RECLAST [Suspect]
     Indication: OSTEOPOROSIS
     Dosage: 4 MG YEARLY
     Dates: start: 20090409, end: 20090409
  2. SINGULAIR [Concomitant]
     Indication: RHINITIS ALLERGIC
     Dosage: 10 MG, QD
     Route: 048
  3. DIOVAN [Concomitant]
     Indication: HYPERTENSION
     Dosage: 160/25
     Route: 048
  4. ASPIRIN [Concomitant]
     Dosage: UNK
  5. CALCIUM [Concomitant]
     Dosage: UNK
  6. VITAMINS [Concomitant]
     Dosage: UNK
  7. FISH OIL [Concomitant]
     Dosage: UNK
  8. CLINDAMYCIN [Concomitant]
     Dosage: UNK
  9. PENICILLIN ^GRUNENTHAL^ [Concomitant]
     Dosage: UNK
  10. MIACALCIN [Concomitant]
  11. PRAVASTATIN [Concomitant]
     Indication: HYPERLIPIDAEMIA
     Dosage: 10 MG, QD
     Route: 048
  12. FLONASE [Concomitant]
     Indication: RHINITIS ALLERGIC

REACTIONS (4)
  - JAW DISORDER [None]
  - MYALGIA [None]
  - OSTEONECROSIS [None]
  - TOOTH INFECTION [None]
